FAERS Safety Report 7743264-9 (Version None)
Quarter: 2011Q3

REPORT INFORMATION
  Report Type: 
  Country: None (occurrence: None)
  Receive Date: 20110819
  Receipt Date: 20110719
  Transmission Date: 20111222
  Serious: No
  Sender: FDA-Public Use
  Company Number: 033870

PATIENT
  Sex: Male

DRUGS (4)
  1. LACOSAMIDE [Suspect]
     Indication: CONVULSION
     Dosage: 100 MG TID
     Dates: start: 20110502, end: 20110518
  2. KEPPRA [Concomitant]
  3. POTASSIUM CITRATE [Concomitant]
  4. TRILEPTAL [Concomitant]

REACTIONS (9)
  - CHROMATURIA [None]
  - EXCESSIVE MASTURBATION [None]
  - TREMOR [None]
  - EJACULATION DISORDER [None]
  - CHEST PAIN [None]
  - DEPRESSION [None]
  - DYSPNOEA [None]
  - DEJA VU [None]
  - RESTLESSNESS [None]
